FAERS Safety Report 17914726 (Version 2)
Quarter: 2020Q2

REPORT INFORMATION
  Report Type: Spontaneous
  Country: US (occurrence: US)
  Receive Date: 20200618
  Receipt Date: 20200624
  Transmission Date: 20200714
  Serious: Yes (Other)
  Sender: FDA-Public Use
  Company Number: US-GILEAD-2020-0473031

PATIENT
  Age: 54 Year
  Sex: Male
  Weight: 164 kg

DRUGS (17)
  1. AZITHROMYCIN ANHYDROUS. [Concomitant]
     Active Substance: AZITHROMYCIN ANHYDROUS
  2. REMDESIVIR. [Suspect]
     Active Substance: REMDESIVIR
     Indication: RESPIRATORY FAILURE
  3. CISATRACURIUM. [Concomitant]
     Active Substance: CISATRACURIUM
  4. MIDAZOLAM. [Concomitant]
     Active Substance: MIDAZOLAM
     Dosage: UNK
  5. REMDESIVIR. [Suspect]
     Active Substance: REMDESIVIR
     Indication: COVID-19 PNEUMONIA
     Dosage: 100 MG, QD
     Route: 042
     Dates: start: 20200605, end: 20200606
  6. FENTANYL. [Concomitant]
     Active Substance: FENTANYL
  7. KETAMINE [Concomitant]
     Active Substance: KETAMINE
  8. EPOPROSTENOL. [Concomitant]
     Active Substance: EPOPROSTENOL
  9. INSULIN LISPRO [Concomitant]
     Active Substance: INSULIN LISPRO
  10. INSULIN REGULAR HM [Concomitant]
     Active Substance: INSULIN NOS
  11. NOREPINEPHRINE. [Concomitant]
     Active Substance: NOREPINEPHRINE
  12. PROPOFOL. [Concomitant]
     Active Substance: PROPOFOL
  13. FAMOTIDINE. [Concomitant]
     Active Substance: FAMOTIDINE
  14. HEPARIN [Concomitant]
     Active Substance: HEPARIN SODIUM
  15. SUCCINYLCHOLINE BROMIDE [Concomitant]
     Active Substance: SUXAMETHONIUM BROMIDE
  16. VANCOMYCIN [Concomitant]
     Active Substance: VANCOMYCIN
  17. CEFTRIAXONE. [Concomitant]
     Active Substance: CEFTRIAXONE

REACTIONS (5)
  - Shock [Not Recovered/Not Resolved]
  - Acute kidney injury [Not Recovered/Not Resolved]
  - Blood bilirubin increased [Not Recovered/Not Resolved]
  - Aspartate aminotransferase increased [Not Recovered/Not Resolved]
  - Disseminated intravascular coagulation [Not Recovered/Not Resolved]

NARRATIVE: CASE EVENT DATE: 202006
